FAERS Safety Report 4591954-1 (Version None)
Quarter: 2005Q1

REPORT INFORMATION
  Report Type: 
  Country: None (occurrence: None)
  Receive Date: 20050222
  Receipt Date: 20050208
  Transmission Date: 20050727
  Serious: Yes (Hospitalization, Other)
  Sender: FDA-Public Use
  Company Number: 200510196BWH

PATIENT
  Age: 49 Year
  Sex: Male

DRUGS (28)
  1. CIPRO [Suspect]
     Indication: PROPHYLAXIS
     Dosage: SEE IMAGE
     Route: 048
     Dates: start: 20031231, end: 20040524
  2. CIPRO [Suspect]
     Indication: PROPHYLAXIS
     Dosage: SEE IMAGE
     Route: 048
     Dates: start: 20040525, end: 20041031
  3. CIPRO [Suspect]
     Indication: PROPHYLAXIS
     Dosage: SEE IMAGE
     Route: 048
     Dates: start: 20041101, end: 20050128
  4. SCH 56592 (POSACONAZOLE) ORAL SUSPENSION (UNCODEABLE ^INVESTIGATIONAL [Suspect]
     Indication: FUNGAL INFECTION
     Dosage: 400 MG, BID, ORAL
     Route: 048
     Dates: start: 20030624, end: 20050126
  5. SCH 56592 (POSACONAZOLE) ORAL SUSPENSION (UNCODEABLE ^INVESTIGATIONAL [Suspect]
     Indication: LUNG DISORDER
     Dosage: 400 MG, BID, ORAL
     Route: 048
     Dates: start: 20030624, end: 20050126
  6. ZOCOR [Concomitant]
  7. PREDNISONE [Concomitant]
  8. METHOTREXATE [Concomitant]
  9. PROGRAF [Concomitant]
  10. CELLCEPT [Concomitant]
  11. OXYCONTIN [Concomitant]
  12. BACTRIM [Concomitant]
  13. LASIX [Concomitant]
  14. DILTIAZEM [Concomitant]
  15. ALBUTEROL [Concomitant]
  16. ASPIRIN [Concomitant]
  17. FOLATE [Concomitant]
  18. GAMMAGARD [Concomitant]
  19. HALCION [Concomitant]
  20. HEXAVITAMIN [Concomitant]
  21. INSULIN [Concomitant]
  22. MAGNESIUM OXIDE [Concomitant]
  23. METOLAZONE [Concomitant]
  24. PROCRIT [Concomitant]
  25. PROTONIX ^WYETH-AYERST' [Concomitant]
  26. SIMVASTATIN [Concomitant]
  27. ZOFRAN ZYDIS LINGUAL [Concomitant]
  28. BIAXIN [Suspect]
     Indication: PROPHYLAXIS
     Dosage: 500 MG, BID,ORAL
     Route: 048
     Dates: start: 20040525

REACTIONS (12)
  - CHEST PAIN [None]
  - DILATATION ATRIAL [None]
  - DILATATION VENTRICULAR [None]
  - ELECTROCARDIOGRAM QT CORRECTED INTERVAL PROLONGED [None]
  - HYPERHIDROSIS [None]
  - LEUKOCYTOSIS [None]
  - NAUSEA [None]
  - PULMONARY EMBOLISM [None]
  - RENAL FAILURE [None]
  - SINUS TACHYCARDIA [None]
  - TROPONIN INCREASED [None]
  - VENTRICULAR EXTRASYSTOLES [None]
